FAERS Safety Report 5511472-3 (Version None)
Quarter: 2007Q4

REPORT INFORMATION
  Report Type: 
  Country: None (occurrence: None)
  Receive Date: 20071109
  Receipt Date: 20071101
  Transmission Date: 20080405
  Serious: Yes (Other)
  Sender: FDA-Public Use
  Company Number: US-ASTRAZENECA-2007UW25358

PATIENT
  Age: 79 Year
  Sex: Female

DRUGS (1)
  1. TENORMIN [Suspect]
     Route: 048

REACTIONS (2)
  - PRURITUS GENERALISED [None]
  - RASH [None]
